FAERS Safety Report 18716580 (Version 1)
Quarter: 2021Q1

REPORT INFORMATION
  Report Type: Spontaneous
  Country: US (occurrence: US)
  Receive Date: 20210107
  Receipt Date: 20210107
  Transmission Date: 20210419
  Serious: No
  Sender: FDA-Public Use
  Company Number: None

PATIENT
  Age: 70 Year
  Sex: Female
  Weight: 102.51 kg

DRUGS (1)
  1. CASIRIVIMAB/IMDEVIMAB (EUA) (CASIRIVIMAB?1200MG/IMDEVIMAB 1200MG (EUA) [Suspect]
     Active Substance: CASIRIVIMAB\IMDEVIMAB
     Indication: COVID-19
     Route: 042
     Dates: start: 20201223, end: 20201223

REACTIONS (4)
  - Vision blurred [None]
  - Cough [None]
  - Dizziness [None]
  - Pain of skin [None]

NARRATIVE: CASE EVENT DATE: 20201223
